FAERS Safety Report 4391610-9 (Version None)
Quarter: 2004Q3

REPORT INFORMATION
  Report Type: 
  Country: None (occurrence: None)
  Receive Date: 20040702
  Receipt Date: 20040204
  Transmission Date: 20050211
  Serious: Yes (Hospitalization)
  Sender: FDA-Public Use
  Company Number: 2004UW01952

PATIENT
  Age: 58 Year
  Sex: Female

DRUGS (18)
  1. CRESTOR [Suspect]
     Indication: BLOOD CHOLESTEROL INCREASED
     Dosage: 10 MG QD PO
     Route: 048
     Dates: start: 20030801
  2. IMDUR [Concomitant]
  3. MONOPRIL [Concomitant]
  4. INSULIN [Concomitant]
  5. ALDACTONE [Concomitant]
  6. COLACE [Concomitant]
  7. COREG [Concomitant]
  8. FISH OIL [Concomitant]
  9. DIGOXIN [Concomitant]
  10. NEXIUM [Concomitant]
  11. .. [Concomitant]
  12. IRON [Concomitant]
  13. LASIX [Concomitant]
  14. MULTI-VITAMINS [Concomitant]
  15. VITAMIN C [Concomitant]
  16. CALCIUM [Concomitant]
  17. MAGNESIUM [Concomitant]
  18. ZINC [Concomitant]

REACTIONS (1)
  - CHEST PAIN [None]
